FAERS Safety Report 9849957 (Version 3)
Quarter: 2015Q3

REPORT INFORMATION
  Report Type: Spontaneous
  Country: US (occurrence: US)
  Receive Date: 20140128
  Receipt Date: 20150807
  Transmission Date: 20151125
  Serious: Yes (Death, Hospitalization, Other)
  Sender: FDA-Public Use
  Company Number: US-009507513-1401USA008422

PATIENT
  Sex: Male

DRUGS (2)
  1. CALCIUM (UNSPECIFIED) [Concomitant]
     Active Substance: CALCIUM
     Indication: CALCIUM DEFICIENCY
     Dosage: 600 MG, UNK
     Route: 048
     Dates: start: 1990
  2. FOSAMAX [Suspect]
     Active Substance: ALENDRONATE SODIUM
     Indication: OSTEOPOROSIS
     Dosage: 10 MG, QD
     Route: 048
     Dates: start: 1995, end: 1999

REACTIONS (20)
  - Hypotension [Fatal]
  - Hypertension [Unknown]
  - Aortic aneurysm rupture [Fatal]
  - Haemoglobin decreased [Recovering/Resolving]
  - Femur fracture [Unknown]
  - Rhinitis allergic [Unknown]
  - Cardio-respiratory arrest [Fatal]
  - Factor XI deficiency [Unknown]
  - Osteoarthritis [Unknown]
  - Pneumonia [Unknown]
  - Femur fracture [Unknown]
  - Cardiac failure congestive [Recovering/Resolving]
  - Hypoxia [Recovering/Resolving]
  - Hypercholesterolaemia [Unknown]
  - Hypogonadism [Unknown]
  - Hypertension [Unknown]
  - Haematocrit decreased [Recovered/Resolved]
  - Intramedullary rod insertion [Unknown]
  - Gastrointestinal disorder [Unknown]
  - Diverticulum [Unknown]

NARRATIVE: CASE EVENT DATE: 199908
